FAERS Safety Report 17834489 (Version 3)
Quarter: 2020Q3

REPORT INFORMATION
  Report Type: Spontaneous
  Country: US (occurrence: US)
  Receive Date: 20200528
  Receipt Date: 20200820
  Transmission Date: 20201103
  Serious: No
  Sender: FDA-Public Use
  Company Number: US-PFIZER INC-2020208963

PATIENT
  Age: 46 Year
  Sex: Female
  Weight: 63.5 kg

DRUGS (2)
  1. XELJANZ [Suspect]
     Active Substance: TOFACITINIB CITRATE
     Indication: RHEUMATOID ARTHRITIS
     Dosage: 5 MG, 2X/DAY (5MG IN THE MORNING AND 5 MG AT NIGHT)/(5 MG TWICE A DAY)
  2. MELOXICAM. [Concomitant]
     Active Substance: MELOXICAM
     Indication: OSTEOPOROSIS
     Dosage: 15 MG, 1X/DAY (15 MG ONCE A DAY)

REACTIONS (1)
  - Condition aggravated [Not Recovered/Not Resolved]
